FAERS Safety Report 22226251 (Version 1)
Quarter: 2023Q2

REPORT INFORMATION
  Report Type: Spontaneous
  Country: US (occurrence: US)
  Receive Date: 20230419
  Receipt Date: 20230419
  Transmission Date: 20230722
  Serious: Yes (Life-Threatening, Hospitalization, Other)
  Sender: FDA-Public Use
  Company Number: US-APOTEX-2023AP007001

PATIENT

DRUGS (3)
  1. MYCOPHENOLIC ACID [Suspect]
     Active Substance: MYCOPHENOLIC ACID
     Indication: Immunosuppression
     Dosage: UNK
     Route: 065
  2. PREDNISONE [Suspect]
     Active Substance: PREDNISONE
     Indication: Immunosuppression
     Dosage: UNK
     Route: 065
  3. BELATACEPT [Suspect]
     Active Substance: BELATACEPT
     Indication: Immunosuppression
     Dosage: UNK
     Route: 065

REACTIONS (9)
  - Cytopenia [Recovering/Resolving]
  - Diffuse large B-cell lymphoma [Recovering/Resolving]
  - Post transplant lymphoproliferative disorder [Recovering/Resolving]
  - Shock haemorrhagic [Recovering/Resolving]
  - End stage renal disease [Recovering/Resolving]
  - Pleural effusion [Recovering/Resolving]
  - Gastrointestinal haemorrhage [Recovering/Resolving]
  - Epstein-Barr virus infection [Recovering/Resolving]
  - COVID-19 [Recovered/Resolved]
